FAERS Safety Report 15962607 (Version 3)
Quarter: 2019Q2

REPORT INFORMATION
  Report Type: Report from Study
  Country: None (occurrence: BE)
  Receive Date: 20190214
  Receipt Date: 20190522
  Transmission Date: 20190711
  Serious: Yes (Hospitalization)
  Sender: FDA-Public Use
  Company Number: BE-ABBVIE-19P-013-2665190-00

PATIENT
  Age: 68 Year
  Sex: Male
  Weight: 106 kg

DRUGS (2)
  1. IBRUTINIB [Suspect]
     Active Substance: IBRUTINIB
     Indication: CHRONIC LYMPHOCYTIC LEUKAEMIA
     Route: 048
     Dates: start: 20181112
  2. VENETOCLAX. [Suspect]
     Active Substance: VENETOCLAX
     Indication: CHRONIC LYMPHOCYTIC LEUKAEMIA
     Route: 048
     Dates: start: 20190204

REACTIONS (2)
  - Hyperphosphataemia [Recovered/Resolved]
  - Hyperkalaemia [Recovered/Resolved]

NARRATIVE: CASE EVENT DATE: 20190204
